FAERS Safety Report 13915108 (Version 1)
Quarter: 2017Q3

REPORT INFORMATION
  Report Type: Spontaneous
  Country: US (occurrence: US)
  Receive Date: 20170828
  Receipt Date: 20170828
  Transmission Date: 20171127
  Serious: Yes (Disabling)
  Sender: FDA-Public Use
  Company Number: None

PATIENT
  Sex: Male
  Weight: 18 kg

DRUGS (2)
  1. PROBIOTICS [Concomitant]
     Active Substance: PROBIOTICS NOS
  2. MIRALAX [Suspect]
     Active Substance: POLYETHYLENE GLYCOL 3350
     Indication: CONSTIPATION
     Dosage: ?          QUANTITY:8 GRAMS;?
     Route: 048

REACTIONS (10)
  - Sleep disorder [None]
  - Communication disorder [None]
  - Anhedonia [None]
  - Abnormal behaviour [None]
  - Social avoidant behaviour [None]
  - Mood swings [None]
  - Tic [None]
  - Anxiety [None]
  - Obsessive-compulsive disorder [None]
  - Sleep terror [None]

NARRATIVE: CASE EVENT DATE: 20170212
